FAERS Safety Report 10944965 (Version 5)
Quarter: 2016Q3

REPORT INFORMATION
  Report Type: Spontaneous
  Country: DK (occurrence: DK)
  Receive Date: 20150323
  Receipt Date: 20160830
  Transmission Date: 20161109
  Serious: Yes (Hospitalization, Other)
  Sender: FDA-Public Use
  Company Number: DK-TEVA-547803ISR

PATIENT
  Age: 60 Year
  Sex: Female
  Weight: 66 kg

DRUGS (7)
  1. PINEX [Concomitant]
     Active Substance: ACETAMINOPHEN
     Dosage: 1 GRAM DAILY;
  2. FOLINSYRE [Concomitant]
  3. ELTROXIN [Concomitant]
     Active Substance: LEVOTHYROXINE
     Indication: MYXOEDEMA
     Dosage: DOSAGE: SEE NARRATIVE
  4. PREDNISOLON [Concomitant]
     Active Substance: PREDNISOLONE
     Indication: PSORIATIC ARTHROPATHY
     Dosage: GIVES STILL
     Route: 048
     Dates: start: 20110819
  5. METHOTREXATE. [Suspect]
     Active Substance: METHOTREXATE
     Indication: PSORIATIC ARTHROPATHY
     Dosage: ONGOING
     Route: 058
     Dates: start: 20121026
  6. SIMPONI [Suspect]
     Active Substance: GOLIMUMAB
     Indication: PSORIATIC ARTHROPATHY
     Route: 058
     Dates: start: 20111104, end: 20150216
  7. OXYNORM [Concomitant]
     Active Substance: OXYCODONE HYDROCHLORIDE
     Dosage: 5 MILLIGRAM DAILY; IN THE MORNING

REACTIONS (5)
  - Lung lobectomy [Recovered/Resolved]
  - Fatigue [Unknown]
  - Lung adenocarcinoma [Recovered/Resolved]
  - Dysphonia [Unknown]
  - Axillary pain [Unknown]

NARRATIVE: CASE EVENT DATE: 20141230
